FAERS Safety Report 15968810 (Version 4)
Quarter: 2021Q4

REPORT INFORMATION
  Report Type: Report from Study
  Country: US (occurrence: US)
  Receive Date: 20190215
  Receipt Date: 20211116
  Transmission Date: 20220303
  Serious: No
  Sender: FDA-Public Use
  Company Number: US-SHIRE-US201849025

PATIENT
  Sex: Female
  Weight: 65.76 kg

DRUGS (34)
  1. PARATHYROID HORMONE [Suspect]
     Active Substance: PARATHYROID HORMONE
     Indication: Hypoparathyroidism
     Route: 065
  2. PARATHYROID HORMONE [Suspect]
     Active Substance: PARATHYROID HORMONE
     Indication: Hypoparathyroidism
     Route: 065
  3. PARATHYROID HORMONE [Suspect]
     Active Substance: PARATHYROID HORMONE
     Indication: Hypoparathyroidism
     Route: 065
  4. DOXYCYCLINE [Concomitant]
     Active Substance: DOXYCYCLINE
     Indication: Cellulitis
  5. TYLENOL [Concomitant]
     Active Substance: ACETAMINOPHEN
     Indication: Cellulitis
  6. ALBUTEROL [Concomitant]
     Active Substance: ALBUTEROL
     Indication: Product used for unknown indication
  7. ALLOPURINOL [Concomitant]
     Active Substance: ALLOPURINOL
     Indication: Gout
  8. CALCITRIOL [Concomitant]
     Active Substance: CALCITRIOL
     Indication: Hypothyroidism
  9. SINEMET [Concomitant]
     Active Substance: CARBIDOPA\LEVODOPA
     Indication: Restless legs syndrome
  10. QUESTRAN [Concomitant]
     Active Substance: CHOLESTYRAMINE
     Indication: Hyperlipidaemia
  11. BENADRYL [Concomitant]
     Active Substance: DIPHENHYDRAMINE HYDROCHLORIDE
     Indication: Pruritus
  12. DOCUSATE SODIUM [Concomitant]
     Active Substance: DOCUSATE SODIUM
     Indication: Constipation
  13. EPINEPHRINE [Concomitant]
     Active Substance: EPINEPHRINE
     Indication: Allergy to arthropod sting
  14. GABAPENTIN [Concomitant]
     Active Substance: GABAPENTIN
     Indication: Neuropathy peripheral
  15. SYNTHROID [Concomitant]
     Active Substance: LEVOTHYROXINE SODIUM
     Indication: Hypothyroidism
  16. LIDOCAINE [Concomitant]
     Active Substance: LIDOCAINE
     Indication: Pain
  17. ATIVAN [Concomitant]
     Active Substance: LORAZEPAM
     Indication: Anxiety
  18. ANTIVERT [Concomitant]
     Active Substance: MECLIZINE HYDROCHLORIDE
     Indication: Nausea
  19. MELOXICAM [Concomitant]
     Active Substance: MELOXICAM
     Indication: Pain
  20. MORPHINE [Concomitant]
     Active Substance: MORPHINE
     Indication: Pain
  21. OXYCODONE [Concomitant]
     Active Substance: OXYCODONE
     Indication: Pain
  22. TRAZODONE [Concomitant]
     Active Substance: TRAZODONE HYDROCHLORIDE
     Indication: Insomnia
  23. TUMS [Concomitant]
     Active Substance: CALCIUM CARBONATE
     Indication: Hypoparathyroidism
  24. VARENICLINE [Concomitant]
     Active Substance: VARENICLINE
     Indication: Smoking cessation therapy
  25. VITAMIN D3 [Concomitant]
     Active Substance: CHOLECALCIFEROL
     Indication: Hypoparathyroidism
  26. ALEVE [Concomitant]
     Active Substance: NAPROXEN SODIUM
     Indication: Product used for unknown indication
  27. CARISOPRODOL [Concomitant]
     Active Substance: CARISOPRODOL
     Indication: Product used for unknown indication
  28. CARBIDOPA [Concomitant]
     Active Substance: CARBIDOPA
     Indication: Product used for unknown indication
  29. MORPHINE SULFATE [Concomitant]
     Active Substance: MORPHINE SULFATE
     Indication: Product used for unknown indication
  30. KLOR-CON [Concomitant]
     Active Substance: POTASSIUM CHLORIDE
     Indication: Product used for unknown indication
  31. ALENDRONATE SODIUM [Concomitant]
     Active Substance: ALENDRONATE SODIUM
     Indication: Product used for unknown indication
  32. PYLERA [Concomitant]
     Active Substance: BISMUTH SUBCITRATE POTASSIUM\METRONIDAZOLE\TETRACYCLINE HYDROCHLORIDE
     Indication: Product used for unknown indication
  33. FLAGYL [Concomitant]
     Active Substance: METRONIDAZOLE\METRONIDAZOLE HYDROCHLORIDE
     Indication: Product used for unknown indication
  34. PROTONIX [Concomitant]
     Active Substance: PANTOPRAZOLE SODIUM
     Indication: Product used for unknown indication

REACTIONS (1)
  - Chest pain [Recovered/Resolved]

NARRATIVE: CASE EVENT DATE: 20180101
